FAERS Safety Report 16095408 (Version 2)
Quarter: 2019Q2

REPORT INFORMATION
  Report Type: Spontaneous
  Country: JP (occurrence: JP)
  Receive Date: 20190320
  Receipt Date: 20190404
  Transmission Date: 20190711
  Serious: Yes (Life-Threatening)
  Sender: FDA-Public Use
  Company Number: JP-PFIZER INC-2019118796

PATIENT
  Age: 64 Year
  Sex: Male

DRUGS (12)
  1. MEROPENEM HYDRATE [Concomitant]
     Active Substance: MEROPENEM
     Indication: FEBRILE NEUTROPENIA
     Dosage: 3 G, DAILY
     Route: 041
     Dates: start: 20190227, end: 20190313
  2. DAUNOMYCIN [Suspect]
     Active Substance: DAUNORUBICIN
     Dosage: 90MG(50 MG/M2), DAILY
     Route: 041
     Dates: start: 20190308, end: 20190309
  3. PREDNISOLONE. [Concomitant]
     Active Substance: PREDNISOLONE
     Indication: PNEUMONIA
     Dosage: 20 MG, DAILY
     Route: 048
     Dates: start: 20190304, end: 20190308
  4. DAUNOMYCIN [Suspect]
     Active Substance: DAUNORUBICIN
     Indication: ACUTE MYELOID LEUKAEMIA
     Dosage: 50 MG/M2, DAILY
     Route: 041
     Dates: start: 20190223
  5. ACETAMINOPHEN. [Concomitant]
     Active Substance: ACETAMINOPHEN
     Indication: PYREXIA
     Dosage: 2000 MG, DAILY
     Route: 041
     Dates: start: 20190308, end: 20190309
  6. CYLOCIDE [Suspect]
     Active Substance: CYTARABINE
     Dosage: 4 G/M2, DAILY
     Route: 041
     Dates: start: 20190308, end: 20190309
  7. CASPOFUNGIN ACETATE. [Concomitant]
     Active Substance: CASPOFUNGIN ACETATE
     Indication: FEBRILE NEUTROPENIA
     Dosage: 50 MG, DAILY
     Route: 041
     Dates: start: 20190307, end: 20190313
  8. APREPITANT. [Concomitant]
     Active Substance: APREPITANT
     Indication: PROPHYLAXIS OF NAUSEA AND VOMITING
     Dosage: 125 MG, DAILY
     Route: 048
     Dates: start: 20190308, end: 20190308
  9. PALONOSETRON HYDROCHLORIDE. [Concomitant]
     Active Substance: PALONOSETRON HYDROCHLORIDE
     Indication: PROPHYLAXIS OF NAUSEA AND VOMITING
     Dosage: 0.75 MG, DAILY
     Route: 041
     Dates: start: 20190308, end: 20190308
  10. TEICOPLANIN [Concomitant]
     Active Substance: TEICOPLANIN
     Indication: FEBRILE NEUTROPENIA
     Dosage: 400 MG, DAILY
     Route: 041
     Dates: start: 20190304, end: 20190313
  11. FILGRASTIM [Concomitant]
     Active Substance: FILGRASTIM
     Indication: NEUTROPENIA
     Dosage: 300 UG, DAILY
     Route: 041
     Dates: start: 20190301, end: 20190310
  12. CYLOCIDE [Suspect]
     Active Substance: CYTARABINE
     Indication: ACUTE MYELOID LEUKAEMIA
     Dosage: 4 G/M2, DAILY
     Route: 041
     Dates: start: 20190223

REACTIONS (1)
  - Interstitial lung disease [Recovering/Resolving]

NARRATIVE: CASE EVENT DATE: 20190308
